FAERS Safety Report 17610674 (Version 1)
Quarter: 2020Q2

REPORT INFORMATION
  Report Type: Spontaneous
  Country: CO (occurrence: CO)
  Receive Date: 20200401
  Receipt Date: 20200401
  Transmission Date: 20200713
  Serious: Yes (Other)
  Sender: FDA-Public Use
  Company Number: CO-ROCHE-2574544

PATIENT
  Age: 60 Year
  Sex: Female

DRUGS (2)
  1. IMIPRAMINE [Concomitant]
     Active Substance: IMIPRAMINE
     Indication: SLEEP DISORDER
     Dosage: ONE MONTH AGO
     Route: 048
  2. XOLAIR [Suspect]
     Active Substance: OMALIZUMAB
     Indication: IDIOPATHIC URTICARIA
     Route: 058
     Dates: start: 201810, end: 20191219

REACTIONS (5)
  - Influenza [Unknown]
  - Pruritus [Recovering/Resolving]
  - Choking [Unknown]
  - Fibromyalgia [Unknown]
  - Hypersensitivity [Unknown]
